FAERS Safety Report 4664237-9 (Version None)
Quarter: 2005Q2

REPORT INFORMATION
  Report Type: 
  Country: None (occurrence: None)
  Receive Date: 20050516
  Receipt Date: 20050516
  Transmission Date: 20051028
  Serious: Yes (Life-Threatening, Hospitalization)
  Sender: FDA-Public Use
  Company Number: None

PATIENT
  Age: 68 Year
  Sex: Male
  Weight: 102.5 kg

DRUGS (1)
  1. VALDECOXIB [Suspect]

REACTIONS (1)
  - GASTROINTESTINAL DISORDER [None]
